FAERS Safety Report 7547006-1 (Version None)
Quarter: 2011Q2

REPORT INFORMATION
  Report Type: 
  Country: None (occurrence: None)
  Receive Date: 20110607
  Receipt Date: 20110601
  Transmission Date: 20111010
  Serious: Yes (Life-Threatening, Hospitalization, Disabling)
  Sender: FDA-Public Use
  Company Number: 2011SP025400

PATIENT
  Age: 48 Year
  Sex: Female

DRUGS (6)
  1. CELEXA [Concomitant]
  2. SEROQUEL [Concomitant]
  3. TRAZODONE HCL [Concomitant]
  4. SAPHRIS [Suspect]
     Indication: BIPOLAR DISORDER
     Dosage: 5MG;BID;SL
     Route: 060
     Dates: start: 20110420
  5. OMEPRAZOLE [Concomitant]
  6. VISTARIL [Concomitant]

REACTIONS (6)
  - HYPERSENSITIVITY [None]
  - ANGIOEDEMA [None]
  - OEDEMA PERIPHERAL [None]
  - WEIGHT INCREASED [None]
  - PULMONARY OEDEMA [None]
  - CARDIAC FAILURE CONGESTIVE [None]
